FAERS Safety Report 21537995 (Version 1)
Quarter: 2022Q4

REPORT INFORMATION
  Report Type: Spontaneous
  Country: JP (occurrence: JP)
  Receive Date: 20221101
  Receipt Date: 20221101
  Transmission Date: 20230113
  Serious: Yes (Hospitalization, Other)
  Sender: FDA-Public Use
  Company Number: JP-NOVARTISPH-NVSJ2022JP100259

PATIENT
  Age: 90 Year
  Sex: Male

DRUGS (5)
  1. ENTRESTO [Suspect]
     Active Substance: SACUBITRIL\VALSARTAN
     Indication: Cardiac failure chronic
     Dosage: 200 MG, BID
     Route: 048
     Dates: end: 20221015
  2. ENTRESTO [Suspect]
     Active Substance: SACUBITRIL\VALSARTAN
     Dosage: 100 MG, QD
     Route: 048
     Dates: start: 20221015
  3. METILDIGOXIN [Concomitant]
     Active Substance: METILDIGOXIN
     Indication: Product used for unknown indication
     Dosage: 0.05 MG, QD
     Route: 048
  4. BISOPROLOL FUMARATE [Concomitant]
     Active Substance: BISOPROLOL FUMARATE
     Indication: Product used for unknown indication
     Dosage: 2.5 MG, QD
     Route: 048
  5. ELIQUIS [Concomitant]
     Active Substance: APIXABAN
     Indication: Product used for unknown indication
     Dosage: 2.5 MG, BID, AFTER BREAKFAST AND DINNER
     Route: 048

REACTIONS (3)
  - Fracture [Unknown]
  - Blood pressure increased [Unknown]
  - Inappropriate schedule of product administration [Unknown]

NARRATIVE: CASE EVENT DATE: 20221015
